FAERS Safety Report 24386913 (Version 2)
Quarter: 2024Q4

REPORT INFORMATION
  Report Type: Report from Study
  Country: CA (occurrence: CA)
  Receive Date: 20241002
  Receipt Date: 20241004
  Transmission Date: 20250114
  Serious: No
  Sender: ROCHE
  Company Number: CA-ROCHE-10000095476

PATIENT
  Sex: Female

DRUGS (3)
  1. OCREVUS [Suspect]
     Active Substance: OCRELIZUMAB
     Indication: Relapsing-remitting multiple sclerosis
     Dosage: MORE DOSAGE INFORMATION IS 300 MG AT DAY 0 AND 14, THEN 600 MG EVERY 6 MONTHS
     Route: 042
     Dates: start: 20210120
  2. ZOVIRAX [Concomitant]
     Active Substance: ACYCLOVIR
  3. ABREVA [Concomitant]
     Active Substance: DOCOSANOL

REACTIONS (3)
  - Blister rupture [Recovering/Resolving]
  - Oral herpes [Recovered/Resolved]
  - Ulcer [Recovered/Resolved]
